FAERS Safety Report 5776496-X (Version None)
Quarter: 2008Q2

REPORT INFORMATION
  Report Type: 
  Country: None (occurrence: None)
  Receive Date: 20080617
  Receipt Date: 20080617
  Transmission Date: 20081010
  Serious: Yes (Other)
  Sender: FDA-Public Use
  Company Number: None

PATIENT
  Age: 53 Year
  Sex: Male
  Weight: 87.5442 kg

DRUGS (2)
  1. AVELOX [Suspect]
     Indication: LUNG INFECTION
     Dosage: 7 PILLS 1 A DAY PO
     Route: 048
     Dates: start: 20080530, end: 20080602
  2. AVELOX [Suspect]
     Indication: PHARYNGOLARYNGEAL PAIN
     Dosage: 7 PILLS 1 A DAY PO
     Route: 048
     Dates: start: 20080530, end: 20080602

REACTIONS (13)
  - ANOREXIA [None]
  - ARTHRALGIA [None]
  - ASTHENIA [None]
  - BLOOD GLUCOSE INCREASED [None]
  - DIZZINESS [None]
  - DRUG HYPERSENSITIVITY [None]
  - DYSPHAGIA [None]
  - HEPATIC ENZYME INCREASED [None]
  - HYPERSOMNIA [None]
  - PHARYNGEAL OEDEMA [None]
  - PYREXIA [None]
  - RASH PRURITIC [None]
  - SWOLLEN TONGUE [None]
